FAERS Safety Report 16045425 (Version 1)
Quarter: 2019Q1

REPORT INFORMATION
  Report Type: Spontaneous
  Country: SE (occurrence: SE)
  Receive Date: 20190307
  Receipt Date: 20190307
  Transmission Date: 20190418
  Serious: Yes (Hospitalization)
  Sender: FDA-Public Use
  Company Number: SE-TEVA-2019-SE-1020186

PATIENT
  Age: 26 Year
  Sex: Female

DRUGS (1)
  1. DIMOR 2 MG FILMDRAGERAD TABLETT [Suspect]
     Active Substance: LOPERAMIDE HYDROCHLORIDE
     Dosage: ^3-5 DAILY SINCE MARCH. 16 TABL PER ASH, 50-80 PCS DAILY  ^?2018-09-01:  ^80 ST, 5 PACKAGES ^
     Route: 048

REACTIONS (5)
  - Intentional overdose [Unknown]
  - Dizziness [Unknown]
  - Palpitations [Unknown]
  - Pallor [Unknown]
  - Tinnitus [Unknown]

NARRATIVE: CASE EVENT DATE: 20180901
